FAERS Safety Report 19812151 (Version 1)
Quarter: 2021Q3

REPORT INFORMATION
  Report Type: Spontaneous
  Country: IT (occurrence: IT)
  Receive Date: 20210909
  Receipt Date: 20210909
  Transmission Date: 20211014
  Serious: Yes (Life-Threatening, Other)
  Sender: FDA-Public Use
  Company Number: IT-MYLANLABS-2021M1059925

PATIENT
  Age: 68 Year
  Sex: Male
  Weight: 100 kg

DRUGS (8)
  1. OXALIPLATIN. [Suspect]
     Active Substance: OXALIPLATIN
     Indication: METASTASES TO LUNG
     Dosage: 140 MILLIGRAM, CYCLE
     Route: 042
     Dates: start: 20210323, end: 20210412
  2. VECTIBIX [Suspect]
     Active Substance: PANITUMUMAB
     Dosage: 100 MILLIGRAM, CYCLE
     Dates: start: 20210323, end: 20210412
  3. MINOCIN CR 100 [Concomitant]
     Route: 048
     Dates: start: 20210323, end: 20210412
  4. CALCIUM LEVOFOLINATE [Suspect]
     Active Substance: LEVOLEUCOVORIN CALCIUM
     Indication: METASTASES TO LUNG
     Dosage: 350 MILLIGRAM, CYCLE
     Route: 042
     Dates: start: 20210323, end: 20210412
  5. LOBIDIUR [Concomitant]
     Active Substance: HYDROCHLOROTHIAZIDE\NEBIVOLOL HYDROCHLORIDE
     Route: 048
  6. VECTIBIX [Suspect]
     Active Substance: PANITUMUMAB
     Indication: METASTASES TO LUNG
     Dosage: 400 MILLIGRAM, CYCLE
     Route: 042
     Dates: start: 20210323, end: 20210412
  7. ZOPRANOL PLUS [Concomitant]
     Route: 048
  8. CARDIRENE [Concomitant]
     Active Substance: ASPIRIN DL-LYSINE
     Route: 048

REACTIONS (4)
  - Bradycardia [Unknown]
  - Oxygen saturation decreased [Unknown]
  - Hypotension [Unknown]
  - Acute myocardial infarction [Unknown]

NARRATIVE: CASE EVENT DATE: 20210412
